FAERS Safety Report 20440293 (Version 3)
Quarter: 2022Q3

REPORT INFORMATION
  Report Type: Spontaneous
  Country: US (occurrence: US)
  Receive Date: 20220207
  Receipt Date: 20220831
  Transmission Date: 20221026
  Serious: Yes (Other)
  Sender: FDA-Public Use
  Company Number: US-INCYTE CORPORATION-2022IN001004

PATIENT

DRUGS (3)
  1. JAKAFI [Suspect]
     Active Substance: RUXOLITINIB
     Indication: Myelofibrosis
     Dosage: 20. MILLIGRAM, BID
     Route: 048
     Dates: start: 20220103
  2. JAKAFI [Suspect]
     Active Substance: RUXOLITINIB
     Dosage: 20. MILLIGRAM, BID
     Route: 048
     Dates: start: 20220103
  3. JAKAFI [Suspect]
     Active Substance: RUXOLITINIB
     Dosage: 20. MILLIGRAM, BID
     Route: 048
     Dates: start: 20220112

REACTIONS (3)
  - Full blood count abnormal [Unknown]
  - Product dose omission in error [Unknown]
  - Constipation [Unknown]
